FAERS Safety Report 4395079-X (Version None)
Quarter: 2004Q3

REPORT INFORMATION
  Report Type: 
  Country: None (occurrence: None)
  Receive Date: 20040706
  Receipt Date: 20040617
  Transmission Date: 20050211
  Serious: Yes (Death)
  Sender: FDA-Public Use
  Company Number: DSA_24579_2004

PATIENT
  Age: 83 Year
  Sex: Female

DRUGS (8)
  1. LORAZEPAM [Suspect]
     Indication: AGITATION
     Dosage: 0.25 MG Q6HR PO
     Route: 048
     Dates: end: 20040429
  2. DILTIAZEM [Concomitant]
  3. ARICEPT [Concomitant]
  4. ASPIRIN [Concomitant]
  5. THIOTHIXENE [Concomitant]
  6. BENZTROPINE MESYLATE [Concomitant]
  7. LIPITOR [Concomitant]
  8. METAMUCIL-2 [Concomitant]

REACTIONS (3)
  - DYSPNOEA [None]
  - NAUSEA [None]
  - RESPIRATORY ARREST [None]
